FAERS Safety Report 9681588 (Version 1)
Quarter: 2013Q4

REPORT INFORMATION
  Report Type: Spontaneous
  Country: JP (occurrence: JP)
  Receive Date: 20131111
  Receipt Date: 20131111
  Transmission Date: 20140711
  Serious: Yes (Hospitalization)
  Sender: FDA-Public Use
  Company Number: JP-PFIZER INC-2013318056

PATIENT
  Age: 6 Decade
  Sex: Male

DRUGS (1)
  1. SELARA [Suspect]
     Dosage: 50 MG, DAILY
     Route: 048

REACTIONS (1)
  - Eye disorder [Unknown]
